FAERS Safety Report 20173175 (Version 6)
Quarter: 2022Q1

REPORT INFORMATION
  Report Type: Report from Study
  Country: US (occurrence: US)
  Receive Date: 20211211
  Receipt Date: 20220207
  Transmission Date: 20220423
  Serious: Yes (Other)
  Sender: FDA-Public Use
  Company Number: US-NOVARTISPH-NVSC2021US277333

PATIENT
  Sex: Male

DRUGS (1)
  1. ENTRESTO [Suspect]
     Active Substance: SACUBITRIL\VALSARTAN
     Indication: Product used for unknown indication
     Dosage: UNK, BID( STARTED 1 WEEK AGO )
     Route: 048

REACTIONS (9)
  - Cerebrovascular accident [Unknown]
  - Blood disorder [Unknown]
  - Poor quality sleep [Not Recovered/Not Resolved]
  - Restlessness [Unknown]
  - Memory impairment [Not Recovered/Not Resolved]
  - Depression [Unknown]
  - Apathy [Unknown]
  - Oedema [Unknown]
  - Hypotension [Unknown]
